FAERS Safety Report 6579324-8 (Version None)
Quarter: 2010Q1

REPORT INFORMATION
  Report Type: 
  Country: None (occurrence: None)
  Receive Date: 20100209
  Receipt Date: 20100209
  Transmission Date: 20100710
  Serious: Yes (Other)
  Sender: FDA-Public Use
  Company Number: None

PATIENT
  Sex: Female
  Weight: 81.6475 kg

DRUGS (2)
  1. TYLENOL (CAPLET) [Suspect]
     Indication: HEADACHE
     Dosage: 2 TABS 8 HOURS PO
     Route: 048
     Dates: start: 20100111, end: 20100118
  2. ROLAIDS [Suspect]
     Indication: DYSPEPSIA
     Dosage: 1 5 HOURS OR AS NEED PO
     Route: 048
     Dates: start: 20060101, end: 20100201

REACTIONS (6)
  - ABDOMINAL PAIN UPPER [None]
  - MALAISE [None]
  - MENTAL STATUS CHANGES [None]
  - NAUSEA [None]
  - PRODUCT QUALITY ISSUE [None]
  - VOMITING [None]
